FAERS Safety Report 20024711 (Version 1)
Quarter: 2021Q4

REPORT INFORMATION
  Report Type: Spontaneous
  Country: DE (occurrence: DE)
  Receive Date: 20211102
  Receipt Date: 20211102
  Transmission Date: 20220303
  Serious: Yes (Hospitalization)
  Sender: FDA-Public Use
  Company Number: DE-ADRED-06769-01

PATIENT
  Age: 61 Year
  Sex: Male

DRUGS (6)
  1. CLOPIDOGREL [Suspect]
     Active Substance: CLOPIDOGREL BISULFATE
     Indication: Product used for unknown indication
     Dosage: 75 MILLIGRAM, QD (75 MG, 1-0-0-0, TABLETTEN)
     Route: 048
  2. TIOTROPIUM [Concomitant]
     Active Substance: TIOTROPIUM
     Dosage: 18 MICROGRAM, QD (18 ?G, 1-0-0-0, DOSIERAEROSOL)
     Route: 055
  3. BISOPROLOL [Concomitant]
     Active Substance: BISOPROLOL
     Dosage: 1.25 MILLIGRAM, QD (2.5 MG, 0.5-0-0-0, TABLETTEN)
     Route: 048
  4. THIAMIN                            /00056101/ [Concomitant]
     Dosage: 300 MILLIGRAM, Q8H (300 MG, 1-1-1-0, TABLETTEN)
     Route: 048
  5. ATORVASTATIN [Concomitant]
     Active Substance: ATORVASTATIN
     Dosage: 10 MILLIGRAM, QD (10 MG, 0-0-1-0, TABLETTEN)
     Route: 048
  6. OMEPRAZOL                          /00661201/ [Concomitant]
     Dosage: 40 MILLIGRAM, QD (40 MG, 1-0-0-0, TABLETTEN)
     Route: 048

REACTIONS (3)
  - Fall [Unknown]
  - Abdominal pain lower [Unknown]
  - Haematochezia [Unknown]
